FAERS Safety Report 9584455 (Version 1)
Quarter: 2013Q4

REPORT INFORMATION
  Report Type: Spontaneous
  Country: US (occurrence: US)
  Receive Date: 20131002
  Receipt Date: 20131002
  Transmission Date: 20140711
  Serious: No
  Sender: FDA-Public Use
  Company Number: US-AMGEN-USASP2013054218

PATIENT
  Age: 44 Year
  Sex: Female
  Weight: 29.03 kg

DRUGS (3)
  1. ENBREL [Suspect]
     Indication: PRODUCT USED FOR UNKNOWN INDICATION
     Dosage: 50 MG, QWK
     Route: 058
  2. ADVIL                              /00109201/ [Concomitant]
     Dosage: 200 MG, UNK
  3. YAZ [Concomitant]
     Dosage: 3-0.02,MG, UNK

REACTIONS (1)
  - Diarrhoea [Unknown]
